FAERS Safety Report 8178935-6 (Version None)
Quarter: 2012Q1

REPORT INFORMATION
  Report Type: 
  Country: None (occurrence: None)
  Receive Date: 20120302
  Receipt Date: 20120223
  Transmission Date: 20120608
  Serious: No
  Sender: FDA-Public Use
  Company Number: US-BIOGENIDEC-2012BI006995

PATIENT
  Age: 35 Year
  Sex: Male

DRUGS (1)
  1. TYSABRI [Suspect]
     Indication: MULTIPLE SCLEROSIS
     Route: 042
     Dates: start: 20101123, end: 20111221

REACTIONS (4)
  - HEARING IMPAIRED [None]
  - HYPOAESTHESIA [None]
  - VISUAL IMPAIRMENT [None]
  - HEADACHE [None]
